FAERS Safety Report 22288580 (Version 1)
Quarter: 2023Q2

REPORT INFORMATION
  Report Type: Spontaneous
  Country: US (occurrence: None)
  Receive Date: 20230504
  Receipt Date: 20230504
  Transmission Date: 20230722
  Serious: Yes (Death)
  Sender: FDA-Public Use
  Company Number: None

PATIENT
  Age: 70 Year
  Sex: Male

DRUGS (9)
  1. CYCLOSPORINE [Suspect]
     Active Substance: CYCLOSPORINE
     Indication: Liver transplant
     Dosage: 15MG 3 CS BID ORAL?? 25MG (MOD) CAPS: DIRECTIONS: TK 3 CS PO BID? ?
     Route: 048
     Dates: start: 20210111
  2. EVEROLIMUS [Suspect]
     Active Substance: EVEROLIMUS
     Indication: Liver transplant
     Dosage: 1MG 1 T BID ORAL? 1MG TABLETS: DIRECTIONS: TK 1 T PO BID?
     Route: 048
     Dates: start: 20220412
  3. ASPIRIN [Concomitant]
     Active Substance: ASPIRIN
  4. CALCIUM\VITAMIN D [Concomitant]
     Active Substance: CALCIUM\VITAMIN D
  5. FUROSEMIDE [Concomitant]
     Active Substance: FUROSEMIDE
  6. LIPITOR [Concomitant]
     Active Substance: ATORVASTATIN CALCIUM
  7. MAGNESIUM OXIDE [Concomitant]
     Active Substance: MAGNESIUM OXIDE
  8. MULTIVITAMIN ADULT 50+ [Concomitant]
  9. PRILOSEC [Concomitant]
     Active Substance: OMEPRAZOLE MAGNESIUM

REACTIONS (1)
  - Myocardial infarction [None]

NARRATIVE: CASE EVENT DATE: 20230401
